FAERS Safety Report 7870336 (Version 6)
Quarter: 2013Q3

REPORT INFORMATION
  Report Type: Report from Study
  Country: US (occurrence: US)
  Receive Date: 20110324
  Receipt Date: 20130820
  Transmission Date: 20140515
  Serious: Yes (Congenital Anomaly)
  Sender: FDA-Public Use
  Company Number: US-GILEAD-2011-0037738

PATIENT
  Sex: Male

DRUGS (5)
  1. TRUVADA [Suspect]
     Indication: HIV INFECTION
     Dosage: 1 DF, QD
     Route: 064
     Dates: start: 20101210
  2. KALETRA [Suspect]
     Indication: HIV INFECTION
     Dosage: 4 DF, QD
     Route: 064
     Dates: start: 20100912
  3. COMBIVIR [Suspect]
     Indication: HIV INFECTION
     Dosage: 2 DF, QD
     Route: 064
     Dates: start: 20100912, end: 20101210
  4. RETROVIR [Suspect]
     Dosage: 2 DF, QD
     Route: 064
     Dates: start: 20110225, end: 20110225
  5. RETROVIR [Suspect]
     Dosage: 1 DF, QD
     Dates: start: 20110225, end: 20110225

REACTIONS (3)
  - Trisomy 21 [Unknown]
  - Atrioventricular septal defect [Unknown]
  - Patent ductus arteriosus [Unknown]
